FAERS Safety Report 18176862 (Version 1)
Quarter: 2020Q3

REPORT INFORMATION
  Report Type: Spontaneous
  Country: US (occurrence: US)
  Receive Date: 20200820
  Receipt Date: 20200820
  Transmission Date: 20201103
  Serious: Yes (Other)
  Sender: FDA-Public Use
  Company Number: US-ALLERGAN-2031142US

PATIENT
  Sex: Female

DRUGS (1)
  1. HYDROCHLOROTHIAZIDE UNK [Suspect]
     Active Substance: HYDROCHLOROTHIAZIDE
     Indication: WEIGHT CONTROL

REACTIONS (4)
  - Abdominal pain upper [Recovered/Resolved]
  - Seizure [Recovered/Resolved]
  - Illness [Recovered/Resolved]
  - Off label use [Unknown]
